FAERS Safety Report 6770789-5 (Version None)
Quarter: 2010Q2

REPORT INFORMATION
  Report Type: 
  Country: None (occurrence: None)
  Receive Date: 20100520
  Receipt Date: 20090506
  Transmission Date: 20101027
  Serious: Yes (Other)
  Sender: FDA-Public Use
  Company Number: 2004232263US

PATIENT
  Age: 53 Year
  Sex: Female
  Weight: 68 kg

DRUGS (8)
  1. PROVERA [Suspect]
     Indication: MENOPAUSAL SYMPTOMS
     Dosage: 2.5 MG, ORAL
     Route: 048
     Dates: start: 19961001, end: 19991201
  2. PREMARIN [Suspect]
     Indication: HORMONE REPLACEMENT THERAPY
     Dosage: 0.625 MG
     Dates: start: 19970701, end: 19991201
  3. PREMPRO [Suspect]
     Indication: HORMONE REPLACEMENT THERAPY
     Dosage: 0.625/2.5MG
     Dates: start: 19960719, end: 19970701
  4. ASPIRIN [Concomitant]
  5. LIPITOR [Concomitant]
  6. ACCUPRIL [Concomitant]
  7. CARDILAN (MAGNESIUM HYDROGEN ASPARTATE, POTASSIUM HYDROGEN ASPARTATE) [Concomitant]
  8. SYNTHROID [Concomitant]

REACTIONS (1)
  - BREAST CANCER [None]
